FAERS Safety Report 23242352 (Version 2)
Quarter: 2024Q3

REPORT INFORMATION
  Report Type: Spontaneous
  Country: US (occurrence: US)
  Receive Date: 20231129
  Receipt Date: 20240710
  Transmission Date: 20241016
  Serious: Yes (Disabling, Other)
  Sender: CHATTEM
  Company Number: US-OPELLA-2023OHG015978

PATIENT
  Age: 70 Year
  Sex: Male

DRUGS (1)
  1. TALC [Suspect]
     Active Substance: TALC
     Indication: Product used for unknown indication
     Route: 065

REACTIONS (8)
  - Epithelioid mesothelioma [Unknown]
  - Disability [Unknown]
  - Exposure to chemical pollution [Unknown]
  - Injury [Unknown]
  - Pain [Unknown]
  - Physical disability [Unknown]
  - Deformity [Unknown]
  - Anxiety [Unknown]

NARRATIVE: CASE EVENT DATE: 20230705
